FAERS Safety Report 10344672 (Version 3)
Quarter: 2014Q3

REPORT INFORMATION
  Report Type: Spontaneous
  Country: JP (occurrence: JP)
  Receive Date: 20140728
  Receipt Date: 20140806
  Transmission Date: 20150326
  Serious: Yes (Hospitalization, Other)
  Sender: FDA-Public Use
  Company Number: PHHY2014JP091881

PATIENT
  Age: 76 Year
  Sex: Female

DRUGS (3)
  1. GLIVEC [Suspect]
     Active Substance: IMATINIB MESYLATE
     Dosage: 200 MG, PER DAY
     Route: 048
  2. GLIVEC [Suspect]
     Active Substance: IMATINIB MESYLATE
     Indication: METASTASES TO LIVER
     Dosage: 400 MG, PER DAY
  3. GLIVEC [Suspect]
     Active Substance: IMATINIB MESYLATE
     Dosage: 300 MG, PER DAY
     Route: 048

REACTIONS (11)
  - Oedema peripheral [Unknown]
  - Liver abscess [Unknown]
  - Decreased appetite [Unknown]
  - Thrombocytopenia [Unknown]
  - Gastrointestinal stromal tumour [Unknown]
  - Neoplasm recurrence [Unknown]
  - Face oedema [Unknown]
  - Fatigue [Unknown]
  - Therapeutic response decreased [Unknown]
  - Gastric cancer [Unknown]
  - Second primary malignancy [Unknown]
